FAERS Safety Report 20969044 (Version 2)
Quarter: 2022Q3

REPORT INFORMATION
  Report Type: Spontaneous
  Country: AU (occurrence: AU)
  Receive Date: 20220616
  Receipt Date: 20220930
  Transmission Date: 20221026
  Serious: Yes (Other)
  Sender: FDA-Public Use
  Company Number: AU-ALLERGAN-2219339US

PATIENT
  Sex: Male

DRUGS (22)
  1. DAPSONE [Suspect]
     Active Substance: DAPSONE
     Indication: Deep vein thrombosis
  2. DAPSONE [Suspect]
     Active Substance: DAPSONE
     Indication: Neutrophilic dermatosis
  3. PREDNISOLONE [Suspect]
     Active Substance: PREDNISOLONE
     Indication: Deep vein thrombosis
  4. PREDNISOLONE [Suspect]
     Active Substance: PREDNISOLONE
     Indication: Neutrophilic dermatosis
  5. ANAKINRA [Suspect]
     Active Substance: ANAKINRA
     Indication: Deep vein thrombosis
  6. ANAKINRA [Suspect]
     Active Substance: ANAKINRA
     Indication: Neutrophilic dermatosis
  7. AZATHIOPRINE [Suspect]
     Active Substance: AZATHIOPRINE
     Indication: Deep vein thrombosis
  8. AZATHIOPRINE [Suspect]
     Active Substance: AZATHIOPRINE
     Indication: Neutrophilic dermatosis
  9. COLCHICINE [Suspect]
     Active Substance: COLCHICINE
     Indication: Deep vein thrombosis
  10. COLCHICINE [Suspect]
     Active Substance: COLCHICINE
     Indication: Neutrophilic dermatosis
  11. METHOTREXATE [Suspect]
     Active Substance: METHOTREXATE
     Indication: Deep vein thrombosis
  12. METHOTREXATE [Suspect]
     Active Substance: METHOTREXATE
     Indication: Neutrophilic dermatosis
  13. MYCOPHENOLIC ACID [Suspect]
     Active Substance: MYCOPHENOLIC ACID
     Indication: Deep vein thrombosis
  14. MYCOPHENOLIC ACID [Suspect]
     Active Substance: MYCOPHENOLIC ACID
     Indication: Neutrophilic dermatosis
  15. POTASSIUM [Suspect]
     Active Substance: POTASSIUM
     Indication: Deep vein thrombosis
  16. POTASSIUM [Suspect]
     Active Substance: POTASSIUM
     Indication: Neutrophilic dermatosis
  17. RITUXIMAB [Suspect]
     Active Substance: RITUXIMAB
     Indication: Deep vein thrombosis
  18. RITUXIMAB [Suspect]
     Active Substance: RITUXIMAB
     Indication: Neutrophilic dermatosis
  19. CYCLOPHOSPHAMIDE [Suspect]
     Active Substance: CYCLOPHOSPHAMIDE
     Indication: Deep vein thrombosis
  20. CYCLOPHOSPHAMIDE [Suspect]
     Active Substance: CYCLOPHOSPHAMIDE
     Indication: Neutrophilic dermatosis
  21. CYCLOSPORINE [Suspect]
     Active Substance: CYCLOSPORINE
     Indication: Deep vein thrombosis
  22. CYCLOSPORINE [Suspect]
     Active Substance: CYCLOSPORINE
     Indication: Neutrophilic dermatosis

REACTIONS (8)
  - Myelosuppression [Unknown]
  - Glucose tolerance impaired [Unknown]
  - Injection site reaction [Unknown]
  - Ulcer [Unknown]
  - Weight increased [Unknown]
  - Cataract [Unknown]
  - Off label use [Unknown]
  - Drug ineffective [Unknown]
